FAERS Safety Report 14239853 (Version 1)
Quarter: 2017Q4

REPORT INFORMATION
  Report Type: Spontaneous
  Country: US (occurrence: US)
  Receive Date: 20171128
  Receipt Date: 20171128
  Transmission Date: 20180321
  Serious: Yes (Other)
  Sender: FDA-Public Use
  Company Number: None

PATIENT

DRUGS (1)
  1. TIANEPTINE SODIUM [Suspect]
     Active Substance: TIANEPTINE SODIUM
     Indication: DRUG DEPENDENCE
     Dosage: STRENGTH 98% PURE G GRAMS?MIXED WITH OZ OF WATER AN CONSUMED
     Dates: start: 20151101, end: 20171128

REACTIONS (1)
  - Drug withdrawal syndrome [None]
